FAERS Safety Report 6906411-4 (Version None)
Quarter: 2010Q3

REPORT INFORMATION
  Report Type: 
  Country: None (occurrence: None)
  Receive Date: 20100804
  Receipt Date: 20100728
  Transmission Date: 20110219
  Serious: Yes (Death)
  Sender: FDA-Public Use
  Company Number: A0873830A

PATIENT
  Age: 60 Year
  Sex: Male

DRUGS (1)
  1. HYCAMTIN [Suspect]
     Indication: PRODUCT USED FOR UNKNOWN INDICATION
     Route: 065
     Dates: start: 20100601, end: 20100728

REACTIONS (2)
  - DEATH [None]
  - NEOPLASM MALIGNANT [None]
